FAERS Safety Report 6032984-2 (Version None)
Quarter: 2009Q1

REPORT INFORMATION
  Report Type: 
  Country: None (occurrence: None)
  Receive Date: 20090109
  Receipt Date: 20090107
  Transmission Date: 20090719
  Serious: Yes (Hospitalization)
  Sender: FDA-Public Use
  Company Number: B0537192A

PATIENT
  Age: 71 Year
  Sex: Male

DRUGS (21)
  1. SERETIDE [Suspect]
     Indication: CHRONIC OBSTRUCTIVE PULMONARY DISEASE
     Dosage: 2PUFF TWICE PER DAY
     Route: 055
  2. VENTOLIN [Suspect]
     Indication: CHRONIC OBSTRUCTIVE PULMONARY DISEASE
     Route: 055
  3. ALBUTEROL SULFATE [Suspect]
     Indication: CHRONIC OBSTRUCTIVE PULMONARY DISEASE
     Dosage: 5MCG AS REQUIRED
     Route: 055
  4. ASPIRIN [Suspect]
     Indication: CARDIAC FAILURE
     Dosage: 75MG PER DAY
     Route: 048
  5. ATROVENT [Suspect]
     Indication: CHRONIC OBSTRUCTIVE PULMONARY DISEASE
     Dosage: 250MCG AS REQUIRED
     Route: 048
  6. FRUSEMIDE [Suspect]
     Route: 048
  7. NITROLINGUAL [Suspect]
     Indication: PAIN
     Route: 048
  8. PERINDOPRIL [Suspect]
     Indication: HYPERTENSION
     Dosage: 4MG UNKNOWN
     Route: 048
  9. ROPINIROLE [Suspect]
     Indication: RESTLESS LEGS SYNDROME
     Dosage: 24MG UNKNOWN
     Route: 048
  10. SPIRONOLACTONE [Suspect]
     Dosage: 25MG UNKNOWN
     Route: 048
  11. TIOTROPIUM [Suspect]
     Indication: CHRONIC OBSTRUCTIVE PULMONARY DISEASE
     Dosage: 18MCG PER DAY
     Route: 065
  12. DILTIAZEM [Suspect]
     Dosage: 90MG PER DAY
     Route: 048
  13. OMEPRAZOLE [Suspect]
     Indication: DRUG USE FOR UNKNOWN INDICATION
     Dosage: 20MG PER DAY
     Route: 048
  14. MIRAPEX [Suspect]
     Dosage: .088MG TWICE PER DAY
     Route: 048
  15. PREDNISOLONE [Suspect]
     Indication: DRUG USE FOR UNKNOWN INDICATION
     Dosage: 20MG PER DAY
     Route: 048
  16. PROCHLORPERAZINE MALEATE [Suspect]
     Indication: NAUSEA
     Dosage: 90MG PER DAY
     Route: 048
  17. CODEINE PHOSPHATE [Suspect]
     Indication: PAIN
     Dosage: 60MG AS REQUIRED
     Route: 048
  18. DIGOXIN [Suspect]
     Dosage: 125MG PER DAY
     Route: 048
  19. UNKNOWN DRUG [Suspect]
     Dosage: 1.25MG PER DAY
  20. MORPHINE [Concomitant]
     Indication: PAIN
     Dosage: 10MG PER DAY
     Route: 065
  21. SINEMET [Concomitant]
     Indication: RESTLESS LEGS SYNDROME
     Dosage: 250MG THREE TIMES PER DAY
     Route: 065

REACTIONS (8)
  - CYSTITIS [None]
  - DYSPNOEA [None]
  - HEART RATE INCREASED [None]
  - HEART RATE IRREGULAR [None]
  - HYPOTENSION [None]
  - KIDNEY INFECTION [None]
  - LYMPHOEDEMA [None]
  - PULMONARY EMBOLISM [None]
